FAERS Safety Report 6822504-4 (Version None)
Quarter: 2010Q3

REPORT INFORMATION
  Report Type: 
  Country: None (occurrence: None)
  Receive Date: 20100707
  Receipt Date: 20100707
  Transmission Date: 20110219
  Serious: Yes (Other)
  Sender: FDA-Public Use
  Company Number: None

PATIENT
  Sex: Male
  Weight: 58.9676 kg

DRUGS (2)
  1. ZOLOFT [Suspect]
     Indication: DEPRESSION
     Dosage: VARIABLE
     Dates: start: 19890701, end: 19930101
  2. LITHIUM CARBONATE [Suspect]
     Indication: BIPOLAR DISORDER
     Dosage: VARIABLE
     Dates: start: 19940701, end: 19950101

REACTIONS (10)
  - ANORGASMIA [None]
  - BIPOLAR DISORDER [None]
  - DECREASED ACTIVITY [None]
  - DRUG INEFFECTIVE [None]
  - DRUG INTOLERANCE [None]
  - ERECTION INCREASED [None]
  - HYPERHIDROSIS [None]
  - LOSS OF EMPLOYMENT [None]
  - QUALITY OF LIFE DECREASED [None]
  - TEMPERATURE INTOLERANCE [None]
